FAERS Safety Report 26108230 (Version 1)
Quarter: 2025Q4

REPORT INFORMATION
  Report Type: Spontaneous
  Country: GB (occurrence: GB)
  Receive Date: 20251201
  Receipt Date: 20251201
  Transmission Date: 20260117
  Serious: Yes (Other)
  Sender: ASCEND THERAPEUTICS US, LLC
  Company Number: GB-Ascend Therapeutics US, LLC-2189537

PATIENT
  Sex: Female

DRUGS (3)
  1. ESTROGEL [Suspect]
     Active Substance: ESTRADIOL
     Indication: Product used for unknown indication
  2. ESTRADIOL [Suspect]
     Active Substance: ESTRADIOL
  3. ESTRADIOL [Suspect]
     Active Substance: ESTRADIOL

REACTIONS (11)
  - Brain fog [Unknown]
  - Product dispensing error [Unknown]
  - Incorrect dose administered by product [Unknown]
  - Drug delivery system malfunction [Unknown]
  - Therapeutic product effect decreased [Unknown]
  - Loss of libido [Unknown]
  - Anxiety [Unknown]
  - Anger [Unknown]
  - Clumsiness [Unknown]
  - Emotional distress [Unknown]
  - Hot flush [Unknown]
